FAERS Safety Report 19865140 (Version 1)
Quarter: 2021Q3

REPORT INFORMATION
  Report Type: Spontaneous
  Country: US (occurrence: US)
  Receive Date: 20210921
  Receipt Date: 20210921
  Transmission Date: 20211014
  Serious: No
  Sender: FDA-Public Use
  Company Number: None

PATIENT
  Sex: Female

DRUGS (1)
  1. MICROGESTIN 1/20 [Suspect]
     Active Substance: ETHINYL ESTRADIOL\NORETHINDRONE ACETATE
     Dates: start: 20210907, end: 20210911

REACTIONS (5)
  - Erythema [None]
  - Paraesthesia [None]
  - Therapy interrupted [None]
  - Pruritus [None]
  - Rash macular [None]

NARRATIVE: CASE EVENT DATE: 20210909
